FAERS Safety Report 12917886 (Version 1)
Quarter: 2016Q4

REPORT INFORMATION
  Report Type: Spontaneous
  Country: US (occurrence: US)
  Receive Date: 20161107
  Receipt Date: 20161107
  Transmission Date: 20170207
  Serious: No
  Sender: FDA-Public Use
  Company Number: US-ASTRAZENECA-2016SF12809

PATIENT
  Sex: Female

DRUGS (2)
  1. PROAIR INHALER [Concomitant]
     Indication: COUGH
     Route: 055
  2. SYMBICORT [Suspect]
     Active Substance: BUDESONIDE\FORMOTEROL FUMARATE DIHYDRATE
     Indication: COUGH
     Dosage: 160/4.5 MCG UNKNOWN FREQUENCY
     Route: 055

REACTIONS (4)
  - Off label use [Unknown]
  - Dysgeusia [Unknown]
  - Product use issue [Unknown]
  - Cough [Recovered/Resolved]
